FAERS Safety Report 23015349 (Version 1)
Quarter: 2023Q4

REPORT INFORMATION
  Report Type: Spontaneous
  Country: US (occurrence: None)
  Receive Date: 20231002
  Receipt Date: 20231002
  Transmission Date: 20240110
  Serious: No
  Sender: FDA-Public Use
  Company Number: None

PATIENT
  Sex: Female

DRUGS (2)
  1. XELJANZ XR [Suspect]
     Active Substance: TOFACITINIB CITRATE
     Indication: Ankylosing spondylitis
     Dosage: FREQUENCY : DAILY;?
     Route: 048
     Dates: start: 20230713
  2. XELJANZ XR [Suspect]
     Active Substance: TOFACITINIB CITRATE
     Indication: Immunodeficiency

REACTIONS (4)
  - Drug ineffective [None]
  - Skin discolouration [None]
  - Cyanosis [None]
  - Pain in extremity [None]
